FAERS Safety Report 9135739 (Version 2)
Quarter: 2013Q1

REPORT INFORMATION
  Report Type: Report from Study
  Country: FR (occurrence: FR)
  Receive Date: 20130304
  Receipt Date: 20130314
  Transmission Date: 20140127
  Serious: Yes (Other)
  Sender: FDA-Public Use
  Company Number: FR-BAYER-2013-024216

PATIENT
  Age: 76 Year
  Sex: Male
  Weight: 83 kg

DRUGS (2)
  1. REGORAFENIB [Suspect]
     Indication: COLORECTAL CANCER METASTATIC
     Dosage: DAILY DOSE 160 MG
     Dates: start: 20130207, end: 20130221
  2. REGORAFENIB [Suspect]
     Indication: ADENOCARCINOMA

REACTIONS (5)
  - Rash [None]
  - Palmar-plantar erythrodysaesthesia syndrome [Not Recovered/Not Resolved]
  - Dyspnoea [None]
  - Asthenia [Not Recovered/Not Resolved]
  - Dysaesthesia [Not Recovered/Not Resolved]
